FAERS Safety Report 8404094-8 (Version None)
Quarter: 2012Q2

REPORT INFORMATION
  Report Type: 
  Country: None (occurrence: None)
  Receive Date: 20120601
  Receipt Date: 20120524
  Transmission Date: 20120825
  Serious: Yes (Hospitalization, Other)
  Sender: FDA-Public Use
  Company Number: US-US-EMD SERONO, INC.-7108643

PATIENT
  Sex: Male
  Weight: 78 kg

DRUGS (2)
  1. METFORMIN HCL [Concomitant]
     Indication: DIABETES MELLITUS
  2. EGRIFTA [Suspect]
     Indication: LIPOHYPERTROPHY
     Dates: start: 20110801

REACTIONS (4)
  - MYALGIA [None]
  - PANCREATITIS [None]
  - DIARRHOEA HAEMORRHAGIC [None]
  - PARAESTHESIA [None]
